FAERS Safety Report 5992096-0 (Version None)
Quarter: 2008Q4

REPORT INFORMATION
  Report Type: 
  Country: None (occurrence: None)
  Receive Date: 20081211
  Receipt Date: 20080522
  Transmission Date: 20090506
  Serious: No
  Sender: FDA-Public Use
  Company Number: US-AMGEN-KDL270779

PATIENT
  Sex: Female
  Weight: 20.4 kg

DRUGS (1)
  1. ENBREL [Suspect]
     Indication: JUVENILE ARTHRITIS
     Route: 058
     Dates: start: 20031101

REACTIONS (9)
  - ABDOMINAL PAIN [None]
  - BRONCHITIS [None]
  - CONSTIPATION [None]
  - DIARRHOEA [None]
  - FATIGUE [None]
  - PALLOR [None]
  - PLEURISY [None]
  - RHEUMATOID ARTHRITIS [None]
  - VOMITING [None]
